FAERS Safety Report 9129091 (Version 1)
Quarter: 2013Q1

REPORT INFORMATION
  Report Type: Spontaneous
  Country: US (occurrence: US)
  Receive Date: 20130228
  Receipt Date: 20130228
  Transmission Date: 20140127
  Serious: No
  Sender: FDA-Public Use
  Company Number: US-ABBOTT-12P-163-1023735-00

PATIENT
  Sex: Male
  Weight: 78.54 kg

DRUGS (8)
  1. ANDROGEL [Suspect]
     Indication: BLOOD TESTOSTERONE DECREASED
     Dosage: 2 PUMPS
     Route: 061
     Dates: start: 201210
  2. ANDROGEL [Suspect]
     Dosage: 1 PACKET
     Route: 061
     Dates: start: 1994, end: 201210
  3. LEVOTHYROXINE [Concomitant]
     Indication: HYPOTHYROIDISM
  4. HYDROCORTISONE [Concomitant]
     Indication: PRODUCT USED FOR UNKNOWN INDICATION
  5. LISINOPRIL [Concomitant]
     Indication: HYPERTENSION
  6. AMLODIPINE [Concomitant]
     Indication: HYPERTENSION
     Dosage: UNKNOWN
  7. ASPIRIN [Concomitant]
     Indication: PRODUCT USED FOR UNKNOWN INDICATION
  8. VITAMIN D [Concomitant]
     Indication: VITAMIN SUPPLEMENTATION

REACTIONS (1)
  - Semen volume decreased [Not Recovered/Not Resolved]
